FAERS Safety Report 10873764 (Version 3)
Quarter: 2015Q1

REPORT INFORMATION
  Report Type: Report from Study
  Country: CA (occurrence: CA)
  Receive Date: 20150227
  Receipt Date: 20150312
  Transmission Date: 20150721
  Serious: Yes (Death, Hospitalization, Other)
  Sender: FDA-Public Use
  Company Number: CA-ABBVIE-15K-028-1339449-00

PATIENT
  Age: 66 Year
  Sex: Male
  Weight: 80 kg

DRUGS (45)
  1. HUMIRA [Suspect]
     Active Substance: ADALIMUMAB
     Route: 058
     Dates: start: 20130420, end: 20130601
  2. METHOTREXATE [Concomitant]
     Active Substance: METHOTREXATE
     Indication: PSORIASIS
     Route: 048
     Dates: start: 200701, end: 20130725
  3. METHOTREXATE [Concomitant]
     Active Substance: METHOTREXATE
     Route: 048
     Dates: start: 20130801, end: 20130801
  4. METHOTREXATE [Concomitant]
     Active Substance: METHOTREXATE
     Dosage: 8 PILLS
     Route: 048
     Dates: start: 201311, end: 20140802
  5. METHOTREXATE [Concomitant]
     Active Substance: METHOTREXATE
     Route: 048
     Dates: start: 20141017, end: 20141025
  6. BETADERM [Concomitant]
     Active Substance: BETAMETHASONE VALERATE
     Indication: PSORIASIS
     Route: 061
     Dates: start: 20130319, end: 20150217
  7. RANITIDINE [Concomitant]
     Active Substance: RANITIDINE\RANITIDINE HYDROCHLORIDE
     Indication: DYSPEPSIA
     Dosage: 30-60 MIN BEFORE CONSOMING FOOD
     Route: 048
     Dates: start: 20130706, end: 20130706
  8. CELEBREX [Concomitant]
     Active Substance: CELECOXIB
     Indication: ARTHRITIS
     Route: 048
     Dates: start: 20141105, end: 20150217
  9. CALCIUM W/MAGNESIUM/VITAMIN D [Concomitant]
     Indication: ROUTINE HEALTH MAINTENANCE
     Route: 048
     Dates: start: 20140415, end: 20150217
  10. STELARA [Suspect]
     Active Substance: USTEKINUMAB
     Dosage: WEEK 4
     Route: 058
     Dates: start: 20140807, end: 20150106
  11. VANCOMYCIN [Suspect]
     Active Substance: VANCOMYCIN
     Indication: CELLULITIS
     Route: 065
  12. METHOTREXATE [Concomitant]
     Active Substance: METHOTREXATE
     Route: 048
     Dates: start: 20130926
  13. METHOTREXATE [Concomitant]
     Active Substance: METHOTREXATE
     Route: 048
     Dates: start: 20140926, end: 20140926
  14. HUMIRA [Suspect]
     Active Substance: ADALIMUMAB
     Indication: PSORIASIS
     Dosage: FIRST DOSE
     Route: 058
     Dates: start: 20130412, end: 20130412
  15. STELARA [Suspect]
     Active Substance: USTEKINUMAB
     Dosage: WEEK 4
     Route: 058
     Dates: start: 20140514, end: 20140514
  16. METHOTREXATE [Concomitant]
     Active Substance: METHOTREXATE
     Route: 048
     Dates: start: 20140912, end: 20140919
  17. METHOTREXATE [Concomitant]
     Active Substance: METHOTREXATE
     Route: 048
     Dates: start: 20141003, end: 20141011
  18. CYCLOCORT [Concomitant]
     Active Substance: AMCINONIDE
     Indication: PSORIASIS
     Dosage: APPLY EVERY NIGHT AT BEDTIME
     Route: 061
     Dates: start: 20130313, end: 20150217
  19. VITAMIN C [Concomitant]
     Active Substance: ASCORBIC ACID
     Indication: ROUTINE HEALTH MAINTENANCE
     Route: 048
     Dates: start: 1973, end: 20150217
  20. ALEVE [Concomitant]
     Active Substance: NAPROXEN SODIUM
     Indication: PSORIASIS
     Dosage: EVERY TWO DAYS
     Route: 048
     Dates: start: 20130609, end: 20150217
  21. VITAMIN B12 [Concomitant]
     Active Substance: CYANOCOBALAMIN
     Indication: ROUTINE HEALTH MAINTENANCE
     Route: 048
     Dates: start: 20140415, end: 20150217
  22. LIPITOR [Concomitant]
     Active Substance: ATORVASTATIN CALCIUM
     Indication: HYPERLIPIDAEMIA
     Route: 048
     Dates: start: 2008, end: 20150217
  23. HYDROCORTISONE. [Concomitant]
     Active Substance: HYDROCORTISONE
     Indication: PSORIASIS
     Route: 061
     Dates: start: 200904, end: 20150217
  24. VITAMIN D [Concomitant]
     Active Substance: CHOLECALCIFEROL
     Route: 048
     Dates: start: 20140415, end: 20150217
  25. ENBREL [Concomitant]
     Active Substance: ETANERCEPT
     Indication: PSORIASIS
     Route: 058
     Dates: start: 20131028, end: 20140413
  26. POLYSPORIN [Concomitant]
     Active Substance: BACITRACIN ZINC\POLYMYXIN B SULFATE
     Indication: SKIN ULCER
     Route: 061
     Dates: start: 201407, end: 20150217
  27. HUMIRA [Suspect]
     Active Substance: ADALIMUMAB
     Route: 058
     Dates: start: 20130615, end: 20130830
  28. ALEVE [Concomitant]
     Active Substance: NAPROXEN SODIUM
     Indication: SKIN HAEMORRHAGE
  29. ULTRAVATE [Concomitant]
     Active Substance: HALOBETASOL PROPIONATE
     Indication: PSORIASIS
     Route: 061
     Dates: start: 20131018, end: 20150217
  30. STELARA [Suspect]
     Active Substance: USTEKINUMAB
     Indication: PSORIASIS
     Dosage: WEEK 0
     Route: 058
     Dates: start: 20140416, end: 20140416
  31. ACETYLSALICYLIC ACID [Concomitant]
     Active Substance: ASPIRIN
     Indication: ROUTINE HEALTH MAINTENANCE
     Route: 048
     Dates: start: 2008, end: 20150217
  32. METHOTREXATE [Concomitant]
     Active Substance: METHOTREXATE
     Route: 048
     Dates: start: 20140809, end: 20140809
  33. METHOTREXATE [Concomitant]
     Active Substance: METHOTREXATE
     Route: 048
     Dates: start: 20140816, end: 20140906
  34. METHOTREXATE [Concomitant]
     Active Substance: METHOTREXATE
     Route: 048
     Dates: start: 20141031, end: 20141031
  35. FOLIC ACID. [Concomitant]
     Active Substance: FOLIC ACID
     Indication: VITAMIN SUPPLEMENTATION
     Route: 048
     Dates: start: 200701, end: 20141031
  36. ALEVE [Concomitant]
     Active Substance: NAPROXEN SODIUM
     Indication: PAIN IN EXTREMITY
     Route: 048
     Dates: start: 2007, end: 20130527
  37. VITAMIN D [Concomitant]
     Active Substance: CHOLECALCIFEROL
     Indication: ROUTINE HEALTH MAINTENANCE
     Route: 048
     Dates: start: 2007, end: 20140414
  38. LIQUID NITROGEN [Concomitant]
     Active Substance: NITROGEN
     Indication: ACTINIC KERATOSIS
     Dosage: 2 SPRAYS TO AREA
     Dates: start: 20140812, end: 20140812
  39. METHOTREXATE [Concomitant]
     Active Substance: METHOTREXATE
     Route: 048
     Dates: start: 20130808, end: 20130919
  40. ALEVE [Concomitant]
     Active Substance: NAPROXEN SODIUM
     Indication: SKIN FISSURES
  41. SAW PALMETTO [Concomitant]
     Active Substance: SAW PALMETTO
     Indication: ROUTINE HEALTH MAINTENANCE
     Route: 048
     Dates: start: 20130508, end: 20150217
  42. GAVISCON [Concomitant]
     Active Substance: ALUMINUM HYDROXIDE\MAGNESIUM CARBONATE
     Indication: DYSPEPSIA
     Dosage: 2-4 TABLETS
     Route: 048
     Dates: start: 20130706, end: 20130707
  43. MULTI VITAMIN [Concomitant]
     Active Substance: VITAMINS
     Indication: ROUTINE HEALTH MAINTENANCE
     Dosage: 1 PILL
     Route: 048
     Dates: start: 1973, end: 20150217
  44. ELOCOM [Concomitant]
     Active Substance: MOMETASONE FUROATE
     Indication: PSORIASIS
     Dosage: EVERY NIGHT AT BEDTIME
     Route: 061
     Dates: start: 20130814, end: 20150217
  45. WHEAT GERM OIL [Concomitant]
     Active Substance: WHEAT GERM OIL
     Indication: ROUTINE HEALTH MAINTENANCE
     Route: 048
     Dates: start: 201412, end: 20150217

REACTIONS (36)
  - Localised infection [Unknown]
  - Cellulitis staphylococcal [Not Recovered/Not Resolved]
  - Blood creatine phosphokinase increased [Unknown]
  - Tachycardia [Unknown]
  - Renal impairment [Unknown]
  - Proteinuria [Unknown]
  - Urine analysis abnormal [Unknown]
  - Pulse absent [Unknown]
  - Wound [Unknown]
  - Drug ineffective [Recovered/Resolved]
  - Peripheral ischaemia [Fatal]
  - Gangrene [Unknown]
  - Red blood cell sedimentation rate increased [Unknown]
  - Nausea [Unknown]
  - Arteriosclerosis [Unknown]
  - Intermittent claudication [Unknown]
  - Cardiac murmur [Unknown]
  - Arterial stenosis [Unknown]
  - Feeling hot [Unknown]
  - Sepsis [Unknown]
  - Sensory loss [Unknown]
  - Delirium [Recovered/Resolved]
  - Multi-organ failure [Fatal]
  - Dysstasia [Unknown]
  - Skin necrosis [Unknown]
  - Sinus tachycardia [Unknown]
  - Respiratory failure [Unknown]
  - Ischaemic hepatitis [Unknown]
  - Aortic aneurysm [Unknown]
  - Pain [Unknown]
  - Extremity necrosis [Unknown]
  - C-reactive protein increased [Unknown]
  - Blood potassium increased [Unknown]
  - Constipation [Unknown]
  - Erythema [Unknown]
  - ECG signs of myocardial ischaemia [Unknown]

NARRATIVE: CASE EVENT DATE: 20130519
